FAERS Safety Report 5694776-3 (Version None)
Quarter: 2008Q2

REPORT INFORMATION
  Report Type: 
  Country: None (occurrence: None)
  Receive Date: 20080404
  Receipt Date: 20080326
  Transmission Date: 20081010
  Serious: Yes (Other)
  Sender: FDA-Public Use
  Company Number: AU-ASTRAZENECA-2008AP01187

PATIENT
  Age: 41 Year
  Sex: Male
  Weight: 98 kg

DRUGS (6)
  1. CRESTOR [Suspect]
     Route: 048
     Dates: start: 20070702, end: 20071017
  2. SIMVASTATIN [Concomitant]
  3. SIMVASTATIN [Concomitant]
  4. IRBESARTAN [Concomitant]
     Indication: HYPERTENSION
     Route: 048
  5. LEXAPRO [Concomitant]
     Indication: DEPRESSION
     Route: 048
  6. MOBIC [Concomitant]
     Indication: OSTEOARTHRITIS
     Route: 048

REACTIONS (3)
  - BLOOD CHOLESTEROL INCREASED [None]
  - BLOOD TRIGLYCERIDES [None]
  - DRUG INEFFECTIVE [None]
